FAERS Safety Report 6812599-6 (Version None)
Quarter: 2010Q3

REPORT INFORMATION
  Report Type: 
  Country: None (occurrence: None)
  Receive Date: 20100701
  Receipt Date: 20100621
  Transmission Date: 20110219
  Serious: Yes (Other)
  Sender: FDA-Public Use
  Company Number: US-PFIZER INC-2010077966

PATIENT
  Age: 16 Year
  Sex: Male

DRUGS (3)
  1. GEODON [Suspect]
     Indication: PSYCHIATRIC SYMPTOM
     Dosage: 40 MG, DAILY (2 CAPSULES OF 20 MG)
     Route: 048
     Dates: start: 20100609, end: 20100618
  2. GEODON [Suspect]
     Dosage: 20 MG, 1X/DAY
     Route: 048
     Dates: start: 20100619
  3. RISPERDAL [Concomitant]
     Dosage: UNK

REACTIONS (4)
  - DEPRESSED MOOD [None]
  - MASKED FACIES [None]
  - SOMNOLENCE [None]
  - TREMOR [None]
